FAERS Safety Report 7349407-3 (Version None)
Quarter: 2011Q1

REPORT INFORMATION
  Report Type: 
  Country: None (occurrence: None)
  Receive Date: 20110303
  Receipt Date: 20100509
  Transmission Date: 20110831
  Serious: Yes (Other)
  Sender: FDA-Public Use
  Company Number: 2010SP026258

PATIENT
  Age: 57 Year
  Sex: Male

DRUGS (5)
  1. MORPHINE [Concomitant]
  2. INTRON A [Suspect]
     Indication: HEPATITIS C
     Dates: start: 20100426
  3. INTRON A [Suspect]
     Indication: HEPATITIS C
     Dates: start: 19960101
  4. PEG-INTRON [Suspect]
     Indication: HEPATITIS C
     Dates: start: 20100426
  5. RIBAVIRIN [Suspect]
     Indication: HEPATITIS C
     Dates: start: 20100426

REACTIONS (25)
  - WEIGHT DECREASED [None]
  - RED BLOOD CELL COUNT DECREASED [None]
  - APPARENT DEATH [None]
  - ASTHENIA [None]
  - STRESS [None]
  - TREMOR [None]
  - DEHYDRATION [None]
  - FEELING COLD [None]
  - FALL [None]
  - VOMITING [None]
  - HYPOPHAGIA [None]
  - PAIN [None]
  - ABDOMINAL PAIN UPPER [None]
  - HIP ARTHROPLASTY [None]
  - DIARRHOEA [None]
  - CHEST PAIN [None]
  - LOSS OF CONSCIOUSNESS [None]
  - FRUSTRATION [None]
  - THROMBOSIS [None]
  - PRURITUS [None]
  - MENTAL DISORDER [None]
  - VISION BLURRED [None]
  - RETCHING [None]
  - INFLUENZA [None]
  - WHITE BLOOD CELL COUNT DECREASED [None]
